FAERS Safety Report 4908034-5 (Version None)
Quarter: 2006Q1

REPORT INFORMATION
  Report Type: 
  Country: None (occurrence: None)
  Receive Date: 20060210
  Receipt Date: 20060208
  Transmission Date: 20060701
  Serious: Yes (Other)
  Sender: FDA-Public Use
  Company Number: 200610557EU

PATIENT
  Age: 44 Year
  Sex: Female

DRUGS (1)
  1. NICODERM [Suspect]
     Indication: SMOKING CESSATION THERAPY
     Dosage: 21MG PER DAY
     Route: 062
     Dates: start: 20060102, end: 20060124

REACTIONS (3)
  - FATIGUE [None]
  - VAGINAL HAEMORRHAGE [None]
  - WEIGHT INCREASED [None]
